FAERS Safety Report 9523608 (Version 1)
Quarter: 2013Q3

REPORT INFORMATION
  Report Type: Spontaneous
  Country: US (occurrence: US)
  Receive Date: 20130913
  Receipt Date: 20130913
  Transmission Date: 20140515
  Serious: Yes (Hospitalization)
  Sender: FDA-Public Use
  Company Number: US-B.I. PHARMACEUTICALS,INC./RIDGEFIELD-2013-BI-28250BP

PATIENT
  Age: 66 Year
  Sex: Female
  Weight: 60 kg

DRUGS (10)
  1. SPIRIVA [Suspect]
     Indication: CHRONIC OBSTRUCTIVE PULMONARY DISEASE
     Dosage: 18 MCG
     Route: 055
     Dates: start: 201107
  2. SOMA [Concomitant]
     Indication: TEMPOROMANDIBULAR JOINT SYNDROME
     Route: 048
  3. KLOR CON [Concomitant]
     Route: 048
  4. VEMLAFAXINE [Concomitant]
     Indication: ANTIDEPRESSANT THERAPY
     Dosage: 150 MG
     Route: 048
  5. GABAPENTIN [Concomitant]
     Indication: PAIN
     Dosage: 1200 MG
     Route: 048
  6. GABAPENTIN [Concomitant]
     Indication: MOOD SWINGS
  7. DIAZEPAM [Concomitant]
     Route: 048
  8. ALBUTEROL [Concomitant]
     Indication: INHALATION THERAPY
     Dosage: FORMULATION:INHALATION SOLUTION
     Route: 055
  9. SYMBICORT [Concomitant]
     Indication: INHALATION THERAPY
     Route: 055
  10. TYLENOL [Concomitant]
     Route: 048

REACTIONS (4)
  - Lung neoplasm malignant [Not Recovered/Not Resolved]
  - Swelling [Recovered/Resolved]
  - Local swelling [Recovered/Resolved]
  - Dyspnoea [Not Recovered/Not Resolved]
